FAERS Safety Report 17118527 (Version 1)
Quarter: 2019Q4

REPORT INFORMATION
  Report Type: Spontaneous
  Country: US (occurrence: US)
  Receive Date: 20191205
  Receipt Date: 20191205
  Transmission Date: 20200122
  Serious: Yes (Hospitalization, Other)
  Sender: FDA-Public Use
  Company Number: US-AUROBINDO-AUR-APL-2019-076220

PATIENT
  Age: 40 Year
  Sex: Female

DRUGS (1)
  1. HYDROMORPHONE HYDROCHLORIDE TABLETS [Suspect]
     Active Substance: HYDROMORPHONE HYDROCHLORIDE
     Indication: CUTANEOUS VASCULITIS
     Dosage: UNK
     Route: 042

REACTIONS (18)
  - Cutaneous vasculitis [Unknown]
  - Papule [Unknown]
  - Epistaxis [Unknown]
  - Acute kidney injury [Unknown]
  - Drug abuse [Unknown]
  - Vasculitis [Unknown]
  - Pain [Unknown]
  - Urine output decreased [Unknown]
  - Crohn^s disease [Unknown]
  - Rash [Unknown]
  - Intentional product misuse [Unknown]
  - Pruritus [Unknown]
  - Oedema peripheral [Unknown]
  - Pyrexia [Unknown]
  - Nodule [Unknown]
  - Skin plaque [Unknown]
  - Glomerulonephritis rapidly progressive [Unknown]
  - Cholangitis sclerosing [Unknown]
